FAERS Safety Report 25178512 (Version 2)
Quarter: 2025Q2

REPORT INFORMATION
  Report Type: Spontaneous
  Country: CN (occurrence: CN)
  Receive Date: 20250409
  Receipt Date: 20250417
  Transmission Date: 20250716
  Serious: Yes (Other)
  Sender: BLUEPRINT MEDICINES
  Company Number: CN-CSTONE PHARMACEUTICALS (SUZHOU) CO., LTD.-2025CN00181

PATIENT
  Age: 15 Year
  Sex: Male
  Weight: 60 kg

DRUGS (10)
  1. AYVAKIT [Suspect]
     Active Substance: AVAPRITINIB
     Indication: Acute myeloid leukaemia
     Dosage: 200 MILLIGRAM, QD
  2. AYVAKIT [Suspect]
     Active Substance: AVAPRITINIB
     Route: 048
     Dates: start: 2023
  3. AYVAKIT [Suspect]
     Active Substance: AVAPRITINIB
     Dosage: 50 MILLIGRAM, 1 TIME FOR EVERY 3 DAYS
     Route: 048
     Dates: start: 202311
  4. LEVOCARNITINE [Concomitant]
     Active Substance: LEVOCARNITINE
     Indication: Cardiovascular event prophylaxis
     Route: 065
  5. LEVOCARNITINE [Concomitant]
     Active Substance: LEVOCARNITINE
     Indication: Prophylaxis
  6. FRUCTOSE [Concomitant]
     Active Substance: FRUCTOSE
     Indication: Cardiovascular event prophylaxis
     Route: 065
  7. FRUCTOSE [Concomitant]
     Active Substance: FRUCTOSE
     Indication: Prophylaxis
  8. COENZYME Q10 [Concomitant]
     Active Substance: DIETARY SUPPLEMENT\UBIDECARENONE
     Indication: Cardiovascular event prophylaxis
     Route: 065
  9. COENZYME Q10 [Concomitant]
     Active Substance: DIETARY SUPPLEMENT\UBIDECARENONE
     Indication: Prophylaxis
  10. FERULIC ACID [Concomitant]
     Active Substance: FERULIC ACID
     Indication: Prophylaxis
     Route: 065

REACTIONS (8)
  - Myocardial necrosis marker increased [Not Recovered/Not Resolved]
  - Product intolerance [Not Recovered/Not Resolved]
  - Off label use [Unknown]
  - Off label use [Unknown]
  - Magnetic resonance imaging head abnormal [Recovering/Resolving]
  - Off label use [Unknown]
  - Blood creatinine abnormal [Not Recovered/Not Resolved]
  - Myoglobin blood increased [Unknown]

NARRATIVE: CASE EVENT DATE: 20230101
